FAERS Safety Report 8549925-6 (Version None)
Quarter: 2012Q3

REPORT INFORMATION
  Report Type: 
  Country: None (occurrence: None)
  Receive Date: 20120730
  Receipt Date: 20120725
  Transmission Date: 20120928
  Serious: Yes (Other)
  Sender: FDA-Public Use
  Company Number: US-BAYER-2012-075535

PATIENT
  Age: 65 Year
  Sex: Female

DRUGS (2)
  1. ULTRAVIST 150 [Suspect]
     Indication: COMPUTERISED TOMOGRAM ABDOMEN
     Dosage: 125 ML, ONCE
     Route: 042
     Dates: start: 20120725
  2. PREDNISONE [Concomitant]
     Indication: PREMEDICATION

REACTIONS (1)
  - OROPHARYNGEAL DISCOMFORT [None]
